FAERS Safety Report 4650307-8 (Version None)
Quarter: 2005Q2

REPORT INFORMATION
  Report Type: 
  Country: None (occurrence: None)
  Receive Date: 20050428
  Receipt Date: 20050414
  Transmission Date: 20051028
  Serious: Yes (Hospitalization)
  Sender: FDA-Public Use
  Company Number: 2005BI003174

PATIENT
  Age: 41 Year
  Sex: Female
  Weight: 95.2554 kg

DRUGS (7)
  1. AVONEX [Suspect]
     Indication: MULTIPLE SCLEROSIS
     Dosage: 30 UG; QW; IM
     Route: 030
     Dates: start: 20031101, end: 20041101
  2. AVONEX [Suspect]
     Indication: MULTIPLE SCLEROSIS
     Dosage: 30 UG; QW; IM
     Route: 030
     Dates: start: 20041101
  3. AMANTADINE HCL [Concomitant]
  4. XANAX [Concomitant]
  5. WELLBUTRIN [Concomitant]
  6. CRANBERRY EXTRACT [Concomitant]
  7. ORTHO EVRA (ETHINYL ESTRADIOL/NOREL GESTROMIN) [Concomitant]

REACTIONS (6)
  - DRUG HYPERSENSITIVITY [None]
  - ESCHERICHIA URINARY TRACT INFECTION [None]
  - INJECTION SITE REACTION [None]
  - NEUROGENIC BLADDER [None]
  - PAIN [None]
  - PYELONEPHRITIS [None]
